FAERS Safety Report 6734613-9 (Version None)
Quarter: 2010Q2

REPORT INFORMATION
  Report Type: 
  Country: None (occurrence: None)
  Receive Date: 20100519
  Receipt Date: 20100512
  Transmission Date: 20101027
  Serious: Yes (Hospitalization)
  Sender: FDA-Public Use
  Company Number: 1000013789

PATIENT
  Age: 50 Year
  Sex: Female

DRUGS (7)
  1. LEXAPRO [Suspect]
     Indication: DEPRESSION
     Dosage: 20 MG (20 MG, 1 IN 1 D), ORAL
     Route: 048
     Dates: start: 20081024, end: 20100504
  2. PLAVIX [Suspect]
     Indication: TRANSIENT ISCHAEMIC ATTACK
     Dosage: 75 MG (75 MG, 1 IN 1 D), ORAL
     Route: 048
  3. LASIX          (40 MILLIGRAM, TABLETS) [Concomitant]
  4. GLUCOPHAGE XR             (500 MILLIGRAM, TABLETS) [Concomitant]
  5. POTASSIUM [Concomitant]
  6. TOPROL-XL [Concomitant]
  7. PROVENTIL (INHALANT) [Concomitant]

REACTIONS (2)
  - CEREBROVASCULAR ACCIDENT [None]
  - DRUG INTERACTION [None]
